FAERS Safety Report 25286879 (Version 1)
Quarter: 2025Q2

REPORT INFORMATION
  Report Type: Spontaneous
  Country: US (occurrence: US)
  Receive Date: 20250509
  Receipt Date: 20250509
  Transmission Date: 20250717
  Serious: No
  Sender: ELI LILLY AND COMPANY
  Company Number: US-ELI_LILLY_AND_COMPANY-US202505005784

PATIENT
  Age: 22 Year
  Sex: Male

DRUGS (2)
  1. BARICITINIB [Suspect]
     Active Substance: BARICITINIB
     Indication: Alopecia areata
     Route: 065
  2. BARICITINIB [Suspect]
     Active Substance: BARICITINIB
     Route: 065

REACTIONS (1)
  - Hyperlipidaemia [Unknown]
